FAERS Safety Report 25010863 (Version 1)
Quarter: 2025Q1

REPORT INFORMATION
  Report Type: Spontaneous
  Country: CN (occurrence: CN)
  Receive Date: 20250225
  Receipt Date: 20250225
  Transmission Date: 20250408
  Serious: Yes (Other)
  Sender: BOEHRINGER INGELHEIM
  Company Number: CN-BoehringerIngelheim-2025-BI-011026

PATIENT
  Age: 46 Year
  Sex: Female

DRUGS (2)
  1. COMBIVENT [Suspect]
     Active Substance: ALBUTEROL SULFATE\IPRATROPIUM BROMIDE
     Indication: Bronchospasm
     Dates: start: 20191017, end: 20191020
  2. PULMICORT RESPULES [Concomitant]
     Active Substance: BUDESONIDE
     Indication: Bronchospasm
     Dosage: THE DOSAGE FORM OF BUDESONIDE SUSPENSION FOR INHALATION: SUSPENSION
     Dates: start: 20191017, end: 20191020

REACTIONS (2)
  - Seizure [Recovering/Resolving]
  - Asthenia [Recovering/Resolving]

NARRATIVE: CASE EVENT DATE: 20191020
